FAERS Safety Report 7201561-X (Version None)
Quarter: 2010Q4

REPORT INFORMATION
  Report Type: 
  Country: None (occurrence: None)
  Receive Date: 20101229
  Receipt Date: 20101222
  Transmission Date: 20110411
  Serious: Yes (Hospitalization)
  Sender: FDA-Public Use
  Company Number: NL-NAPPMUNDI-GBR-2010-0007531

PATIENT
  Sex: Female
  Weight: 103 kg

DRUGS (23)
  1. BUTRANS 10MG TRANSDERMAL PATCH [Suspect]
     Indication: PAIN
     Dosage: 10 MCG/HR, UNK
     Route: 062
     Dates: start: 20100824, end: 20101102
  2. BUTRANS 10MG TRANSDERMAL PATCH [Suspect]
     Dosage: 5 MCG/HR, UNK
     Route: 062
  3. OXYNORM CAPSULES 5 MG [Concomitant]
     Dosage: UNK, PRN
  4. ACENOCOUMORAL [Concomitant]
     Indication: THROMBOSIS
     Dosage: UNK, PRN
  5. BISOPROLOL [Concomitant]
     Dosage: 2.5 MG, DAILY
  6. BUMETANIDE [Concomitant]
     Dosage: 2 MG, BID
  7. CALCI CHEW D3 [Concomitant]
     Dosage: 1 DF, DAILY
  8. LOSARTAN [Concomitant]
     Dosage: 50 MG, DAILY
  9. NEXIUM [Concomitant]
     Dosage: 40 MG, DAILY
  10. OXAZEPAM [Concomitant]
     Dosage: 5 MG, DAILY
  11. PARACETAMOL [Concomitant]
     Dosage: 1000 MG, TID
  12. SIMVASTATINE A [Concomitant]
     Dosage: 20 MG, DAILY
  13. SPIRONOLACTONE [Concomitant]
     Dosage: 25 MG, DAILY
  14. GLUCAGEN [Concomitant]
  15. LANTUS [Concomitant]
     Dosage: 30 IU, UNK
  16. LYRICA [Concomitant]
     Dosage: 75 MG, BID
  17. NITROGLYCERIN [Concomitant]
     Dosage: UNK, PRN
  18. SERETIDE [Concomitant]
     Dosage: 1 DF, BID
  19. SPIRIVA [Concomitant]
     Dosage: 1 DF, DAILY
  20. LIDOCAINE [Concomitant]
     Dosage: 10 MG, PRN
  21. MOVICOLON [Concomitant]
     Dosage: 1 DF, DAILY
  22. CETOMACROGOL                       /03594201/ [Concomitant]
  23. VASELINELANETTE [Concomitant]

REACTIONS (1)
  - CARDIAC FAILURE [None]
